FAERS Safety Report 6283992-8 (Version None)
Quarter: 2009Q3

REPORT INFORMATION
  Report Type: 
  Country: None (occurrence: None)
  Receive Date: 20090725
  Receipt Date: 20090401
  Transmission Date: 20100115
  Serious: No
  Sender: FDA-Public Use
  Company Number: US-TYCO HEALTHCARE/MALLINCKRODT-T200900782

PATIENT
  Age: 57 Year
  Sex: Female
  Weight: 81.633 kg

DRUGS (8)
  1. MORPHINE [Suspect]
     Indication: BACK PAIN
     Dosage: 75 MG, TID
     Route: 048
     Dates: start: 20090101
  2. PAXIL [Concomitant]
     Indication: DEPRESSION
     Dosage: 60 MG, QD
     Route: 048
     Dates: end: 20090301
  3. DESVENLAFAXINE [Concomitant]
     Indication: DEPRESSION
     Dosage: 50 MG, QD
     Route: 048
     Dates: start: 20090301
  4. TENORMIN [Concomitant]
     Indication: HYPERTENSION
     Dosage: 100 MG, BID
     Route: 048
  5. XANAX [Concomitant]
     Indication: ANXIETY
     Dosage: 0.5 MG, BID
     Route: 048
  6. XANAX [Concomitant]
     Dosage: 2 MG, QD (QHS)
     Route: 048
  7. GEODON                             /01487002/ [Concomitant]
     Indication: DEPRESSION
     Dosage: 60 MG, BID
     Route: 048
  8. SYNTHROID [Concomitant]
     Indication: HYPOTHYROIDISM
     Dosage: 75 UG, QD
     Route: 048

REACTIONS (6)
  - ABDOMINAL PAIN UPPER [None]
  - CHILLS [None]
  - HOT FLUSH [None]
  - IRRITABILITY [None]
  - NAUSEA [None]
  - PILOERECTION [None]
